FAERS Safety Report 5139391-5 (Version None)
Quarter: 2006Q4

REPORT INFORMATION
  Report Type: 
  Country: None (occurrence: None)
  Receive Date: 20061026
  Receipt Date: 20061026
  Transmission Date: 20070319
  Serious: No
  Sender: FDA-Public Use
  Company Number: None

PATIENT
  Sex: Male
  Weight: 16.3 kg

DRUGS (11)
  1. VINCRISTINE [Suspect]
     Indication: ACUTE LYMPHOCYTIC LEUKAEMIA
     Dosage: IV 1 MG WEEKLY IV
     Route: 042
     Dates: start: 20060911
  2. VINCRISTINE [Suspect]
     Indication: ACUTE LYMPHOCYTIC LEUKAEMIA
     Dosage: IV 1 MG WEEKLY IV
     Route: 042
     Dates: start: 20060918
  3. VINCRISTINE [Suspect]
     Indication: ACUTE LYMPHOCYTIC LEUKAEMIA
     Dosage: IV 1 MG WEEKLY IV
     Route: 042
     Dates: start: 20060927
  4. VINCRISTINE [Suspect]
     Indication: ACUTE LYMPHOCYTIC LEUKAEMIA
     Dosage: IV 1 MG WEEKLY IV
     Route: 042
     Dates: start: 20061004
  5. DECADRON [Concomitant]
  6. ARA-C [Concomitant]
  7. FLUCONAZOLE [Concomitant]
  8. ZANTAC [Concomitant]
  9. MIRALAX [Concomitant]
  10. PEG ASPARAGINASE [Concomitant]
  11. METHOTREXATE [Concomitant]

REACTIONS (3)
  - HYPONATRAEMIA [None]
  - INAPPROPRIATE ANTIDIURETIC HORMONE SECRETION [None]
  - WEIGHT INCREASED [None]
